FAERS Safety Report 16795845 (Version 1)
Quarter: 2019Q3

REPORT INFORMATION
  Report Type: Spontaneous
  Country: US (occurrence: US)
  Receive Date: 20190911
  Receipt Date: 20190911
  Transmission Date: 20191005
  Serious: Yes (Other)
  Sender: FDA-Public Use
  Company Number: US-GILEAD-2019-0427645

PATIENT
  Age: 40 Year
  Sex: Male

DRUGS (4)
  1. YESCARTA [Suspect]
     Active Substance: AXICABTAGENE CILOLEUCEL
     Indication: LYMPHOMA
     Dosage: 2 X 106 CAR T CELLS/KG
     Route: 042
  2. CYCLOPHOSPHAMIDE. [Concomitant]
     Active Substance: CYCLOPHOSPHAMIDE
     Indication: BONE MARROW CONDITIONING REGIMEN
  3. IVIG [Concomitant]
     Active Substance: HUMAN IMMUNOGLOBULIN G
  4. FLUDARABINE [Concomitant]
     Active Substance: FLUDARABINE PHOSPHATE
     Indication: BONE MARROW CONDITIONING REGIMEN

REACTIONS (3)
  - Cytokine release syndrome [Unknown]
  - Hypogammaglobulinaemia [Unknown]
  - Respiratory tract infection [Unknown]
